FAERS Safety Report 13572944 (Version 2)
Quarter: 2017Q2

REPORT INFORMATION
  Report Type: Spontaneous
  Country: BR (occurrence: BR)
  Receive Date: 20170523
  Receipt Date: 20170530
  Transmission Date: 20170830
  Serious: Yes (Other)
  Sender: FDA-Public Use
  Company Number: BR-ASTRAZENECA-2017SE52405

PATIENT

DRUGS (2)
  1. ROSUVASTATIN. [Suspect]
     Active Substance: ROSUVASTATIN
     Dosage: DOSE UNKNOWN
     Route: 048
  2. TICAGRELOR [Suspect]
     Active Substance: TICAGRELOR
     Dosage: DOSE UNKNOWN
     Route: 048

REACTIONS (3)
  - Bronchospasm [Recovered/Resolved]
  - Acute respiratory failure [Recovered/Resolved]
  - Cardiac failure [Unknown]
